FAERS Safety Report 5684112-0 (Version None)
Quarter: 2008Q1

REPORT INFORMATION
  Report Type: 
  Country: None (occurrence: None)
  Receive Date: 20080328
  Receipt Date: 20070801
  Transmission Date: 20080703
  Serious: No
  Sender: FDA-Public Use
  Company Number: US-AMGEN-KDL236755

PATIENT
  Sex: Male

DRUGS (7)
  1. NEULASTA [Suspect]
     Indication: CHEMOTHERAPY
     Dates: start: 20070501
  2. FOLIC ACID [Concomitant]
     Dates: start: 20070501
  3. VITAMIN CAP [Concomitant]
  4. ASPIRIN [Concomitant]
  5. LOPRIL [Concomitant]
  6. CISPLATIN [Concomitant]
  7. ALIMTA [Concomitant]

REACTIONS (1)
  - SCIATICA [None]
